FAERS Safety Report 20510770 (Version 2)
Quarter: 2022Q2

REPORT INFORMATION
  Report Type: Spontaneous
  Country: DE (occurrence: DE)
  Receive Date: 20220224
  Receipt Date: 20220409
  Transmission Date: 20220720
  Serious: Yes (Death, Other)
  Sender: FDA-Public Use
  Company Number: DE-AMGEN-DEUSP2022028637

PATIENT

DRUGS (2)
  1. XGEVA [Suspect]
     Active Substance: DENOSUMAB
     Indication: Parathyroid tumour
     Dosage: UNK
     Route: 065
  2. CINACALCET HYDROCHLORIDE [Suspect]
     Active Substance: CINACALCET HYDROCHLORIDE
     Indication: Parathyroid tumour
     Route: 065

REACTIONS (12)
  - Parathyroid tumour [Fatal]
  - Metastases to lung [Fatal]
  - Arterial haemorrhage [Fatal]
  - Death [Fatal]
  - Metastases to lymph nodes [Unknown]
  - Metastases to bone [Unknown]
  - Metastases to central nervous system [Unknown]
  - Paralysis recurrent laryngeal nerve [Unknown]
  - Hypercalcaemia [Unknown]
  - Hypoparathyroidism [Unknown]
  - Nausea [Unknown]
  - Vomiting [Unknown]
